FAERS Safety Report 20995313 (Version 10)
Quarter: 2022Q4

REPORT INFORMATION
  Report Type: Report from Study
  Country: PL (occurrence: None)
  Receive Date: 20220622
  Receipt Date: 20221128
  Transmission Date: 20230113
  Serious: Yes (Hospitalization)
  Sender: FDA-Public Use
  Company Number: PL-ROCHE-2929993

PATIENT
  Age: 75 Year
  Sex: Male
  Weight: 71 kg

DRUGS (26)
  1. ATEZOLIZUMAB [Suspect]
     Active Substance: ATEZOLIZUMAB
     Indication: Renal cell carcinoma
     Dosage: DATE OF MOST RECENT DOSE OF STUDY DRUG PRIOR TO AE AND SAE: 14/SEP/2021, 06/DEC/2021 25/MAR/2022, MO
     Route: 041
     Dates: start: 20210309
  2. CABOZANTINIB [Suspect]
     Active Substance: CABOZANTINIB
     Indication: Renal cell carcinoma
     Dosage: DATE OF MOST RECENT DOSE OF STUDY DRUG PRIOR TO AE AND SAE: /OCT/2021, 06/DEC/2021 AND 26/DEC/2021 (
     Route: 048
     Dates: start: 20210309
  3. CABOZANTINIB [Suspect]
     Active Substance: CABOZANTINIB
     Route: 048
  4. ZOFENOPRIL [Concomitant]
     Active Substance: ZOFENOPRIL
     Indication: Hypertension
     Route: 048
     Dates: start: 2018
  5. TRIFAS [Concomitant]
     Indication: Hypertension
     Route: 048
     Dates: start: 2018
  6. AMLOPIN [Concomitant]
     Indication: Hypertension
     Route: 048
     Dates: start: 2018
  7. FLUTICASONE PROPIONATE [Concomitant]
     Active Substance: FLUTICASONE PROPIONATE
     Indication: Chronic obstructive pulmonary disease
     Route: 048
     Dates: start: 2014
  8. EUTHYROX [Concomitant]
     Active Substance: LEVOTHYROXINE SODIUM
     Indication: Hypothyroidism
     Route: 048
     Dates: start: 20210824, end: 20210913
  9. EUTHYROX [Concomitant]
     Active Substance: LEVOTHYROXINE SODIUM
     Indication: Blood thyroid stimulating hormone increased
     Route: 048
     Dates: start: 20210824, end: 20210913
  10. EUTHYROX [Concomitant]
     Active Substance: LEVOTHYROXINE SODIUM
     Route: 048
     Dates: start: 20210914, end: 20211003
  11. EUTHYROX [Concomitant]
     Active Substance: LEVOTHYROXINE SODIUM
     Route: 048
     Dates: start: 20211004, end: 20211224
  12. EUTHYROX [Concomitant]
     Active Substance: LEVOTHYROXINE SODIUM
     Route: 048
     Dates: start: 20211004, end: 20211224
  13. MODERNA COVID-19 VACCINE [Concomitant]
     Active Substance: ELASOMERAN
     Route: 058
     Dates: start: 20210310, end: 20210310
  14. MODERNA COVID-19 VACCINE [Concomitant]
     Active Substance: ELASOMERAN
     Route: 058
     Dates: start: 20210413, end: 20210413
  15. MODERNA COVID-19 VACCINE [Concomitant]
     Active Substance: ELASOMERAN
     Dates: start: 202111
  16. THIOCODIN (POLAND) [Concomitant]
     Indication: Cough
     Dosage: 2 TABLET
     Route: 048
     Dates: start: 20211115
  17. SPORANOX [Concomitant]
     Active Substance: ITRACONAZOLE
     Indication: Fungal infection
     Route: 048
     Dates: start: 20220414
  18. POTASSIUM CHLORIDE [Concomitant]
     Active Substance: POTASSIUM CHLORIDE
     Indication: Prophylaxis
     Dosage: 2 TABLET
     Route: 048
  19. ENOXAPARIN SODIUM [Concomitant]
     Active Substance: ENOXAPARIN SODIUM
     Indication: Prophylaxis
     Route: 058
  20. ETHAMSYLATE [Concomitant]
     Active Substance: ETHAMSYLATE
     Indication: Prophylaxis
     Dosage: 1 AMPULE
     Route: 042
  21. ARGOSULFAN [Concomitant]
     Dosage: UNKNOWN MG
     Route: 062
  22. PROBIOTICS NOS [Concomitant]
     Active Substance: PROBIOTICS NOS
     Indication: Prophylaxis
     Dosage: 1 TABLET
     Route: 048
  23. PANTOPRAZOLE [Concomitant]
     Active Substance: PANTOPRAZOLE
     Indication: Prophylaxis
     Route: 048
  24. ASPAFAR [Concomitant]
     Indication: Prophylaxis
     Dosage: 2 TABLET
     Route: 048
  25. ZAFIRON [Concomitant]
     Indication: Prophylaxis
     Route: 048
  26. DOXANORM [Concomitant]
     Indication: Hypertension
     Route: 048
     Dates: start: 20220606

REACTIONS (3)
  - Pneumonia bacterial [Recovered/Resolved]
  - Pneumonitis [Recovered/Resolved]
  - Pneumonia fungal [Recovered/Resolved]

NARRATIVE: CASE EVENT DATE: 20211004
